FAERS Safety Report 6349502-1 (Version None)
Quarter: 2009Q3

REPORT INFORMATION
  Report Type: 
  Country: None (occurrence: None)
  Receive Date: 20090911
  Receipt Date: 20090828
  Transmission Date: 20100115
  Serious: Yes (Hospitalization)
  Sender: FDA-Public Use
  Company Number: US-ROCHE-653250

PATIENT
  Sex: Female

DRUGS (9)
  1. PEG-INTERFERON A-2A (RO 25-8310) [Suspect]
     Indication: HEPATITIS C
     Route: 058
     Dates: start: 20090715, end: 20090806
  2. RIBAVIRIN [Suspect]
     Indication: HEPATITIS C
     Route: 048
     Dates: start: 20090715, end: 20090806
  3. BMS-790052 (HCV NS5A INHIBITOR) [Suspect]
     Indication: HEPATITIS C
     Route: 048
     Dates: start: 20090715, end: 20090806
  4. ASPIRIN [Suspect]
     Indication: DRUG USE FOR UNKNOWN INDICATION
     Dosage: DRUG GIVEN AS BAYER ASPIRIN
     Route: 048
     Dates: start: 20080201, end: 20090806
  5. MICARDIS [Concomitant]
     Dates: start: 20070601
  6. PROVENTIL-HFA [Concomitant]
     Dates: start: 20080901
  7. TOPROL-XL [Concomitant]
  8. NASONEX [Concomitant]
  9. AMBIEN [Concomitant]

REACTIONS (4)
  - ANAEMIA [None]
  - CHEST PAIN [None]
  - EPISTAXIS [None]
  - SYNCOPE [None]
